FAERS Safety Report 9196811 (Version 2)
Quarter: 2014Q2

REPORT INFORMATION
  Report Type: Report from Study
  Country: GB (occurrence: GB)
  Receive Date: 20130328
  Receipt Date: 20140617
  Transmission Date: 20141212
  Serious: Yes (Hospitalization, Other)
  Sender: FDA-Public Use
  Company Number: GB-MERCK-1303GBR012272

PATIENT
  Age: 61 Year
  Sex: Male
  Weight: 88.3 kg

DRUGS (7)
  1. VORINOSTAT [Suspect]
     Indication: PLASMA CELL MYELOMA
     Dosage: 300 MG, ON DAYS 1-7, 15-21
     Route: 048
     Dates: start: 20130304
  2. VORINOSTAT [Suspect]
     Dosage: 300 MG, ON DAYS 1-7, 15-21
     Route: 048
     Dates: start: 20130310, end: 20130318
  3. LENALIDOMIDE [Suspect]
     Indication: PLASMA CELL MYELOMA
     Dosage: 10 MG, ON DAYS 1-21
     Route: 048
     Dates: start: 20130304
  4. LENALIDOMIDE [Suspect]
     Dosage: 10 MG, ON DAYS 1-21
     Route: 048
     Dates: start: 20130311, end: 20130318
  5. METFORMIN [Concomitant]
     Indication: TYPE 2 DIABETES MELLITUS
     Dosage: 1 G, BID
     Route: 048
     Dates: end: 20130318
  6. INDAPAMIDE [Concomitant]
     Indication: HYPERTENSION
     Dosage: 1.5 MG, QD
     Route: 048
     Dates: end: 20130318
  7. DOXAZOSIN MESYLATE [Concomitant]
     Indication: HYPERTENSION
     Dosage: 4 MG, QD
     Route: 048
     Dates: end: 20130318

REACTIONS (1)
  - Renal failure acute [Recovered/Resolved]
